FAERS Safety Report 13948168 (Version 1)
Quarter: 2017Q3

REPORT INFORMATION
  Report Type: Spontaneous
  Country: US (occurrence: US)
  Receive Date: 20170907
  Receipt Date: 20170907
  Transmission Date: 20171128
  Serious: Yes (Other)
  Sender: FDA-Public Use
  Company Number: None

PATIENT
  Age: 38 Year
  Sex: Female
  Weight: 52.2 kg

DRUGS (2)
  1. BOTOX [Suspect]
     Active Substance: ONABOTULINUMTOXINA
     Indication: SKIN WRINKLING
     Dosage: ?          QUANTITY:10 UNITS;OTHER ROUTE:INJECTED?
     Dates: start: 20170824, end: 20170824
  2. BOTOX [Suspect]
     Active Substance: ONABOTULINUMTOXINA
     Indication: HEADACHE
     Dosage: ?          QUANTITY:10 UNITS;OTHER ROUTE:INJECTED?
     Dates: start: 20170824, end: 20170824

REACTIONS (8)
  - Discomfort [None]
  - Impaired work ability [None]
  - Paraesthesia [None]
  - Anxiety [None]
  - Influenza like illness [None]
  - Muscle twitching [None]
  - Tremor [None]
  - Migraine [None]

NARRATIVE: CASE EVENT DATE: 20170831
